FAERS Safety Report 22602741 (Version 2)
Quarter: 2023Q2

REPORT INFORMATION
  Report Type: Report from Study
  Country: US (occurrence: US)
  Receive Date: 20230615
  Receipt Date: 20230620
  Transmission Date: 20230721
  Serious: Yes (Hospitalization)
  Sender: FDA-Public Use
  Company Number: US-JNJFOC-20230626133

PATIENT
  Age: 17 Year
  Sex: Male
  Weight: 113.5 kg

DRUGS (1)
  1. INFLIXIMAB [Suspect]
     Active Substance: INFLIXIMAB
     Indication: Inflammatory bowel disease
     Route: 041
     Dates: start: 20211013, end: 20211129

REACTIONS (1)
  - Norovirus infection [Recovered/Resolved]

NARRATIVE: CASE EVENT DATE: 20211201
